FAERS Safety Report 5709856-3 (Version None)
Quarter: 2008Q2

REPORT INFORMATION
  Report Type: 
  Country: None (occurrence: None)
  Receive Date: 20080418
  Receipt Date: 20070308
  Transmission Date: 20081010
  Serious: No
  Sender: FDA-Public Use
  Company Number: US-ASTRAZENECA-2007UW04579

PATIENT
  Age: 71 Year
  Sex: Male
  Weight: 88 kg

DRUGS (8)
  1. TOPROL-XL [Suspect]
     Indication: PROPHYLAXIS
     Route: 048
     Dates: start: 20060101
  2. TOPROL-XL [Suspect]
     Dosage: DECREASED DOSE TO 12.5 MG IN 2006
     Route: 048
     Dates: start: 19930101, end: 20060101
  3. PREVACID [Concomitant]
  4. CELEBREX [Concomitant]
  5. CRESTOR [Concomitant]
  6. NASAL SPRAY [Concomitant]
  7. ASPIRIN [Concomitant]
  8. TYLENOL (CAPLET) [Concomitant]

REACTIONS (3)
  - DIZZINESS [None]
  - HYPOTENSION [None]
  - PHOTOPSIA [None]
